FAERS Safety Report 17138947 (Version 1)
Quarter: 2019Q4

REPORT INFORMATION
  Report Type: Spontaneous
  Country: US (occurrence: US)
  Receive Date: 20191210
  Receipt Date: 20191210
  Transmission Date: 20200122
  Serious: No
  Sender: FDA-Public Use
  Company Number: None

PATIENT
  Age: 3 Year
  Sex: Female
  Weight: 18.45 kg

DRUGS (1)
  1. SINGULAIR [Suspect]
     Active Substance: MONTELUKAST SODIUM
     Indication: ASTHMA

REACTIONS (5)
  - Insomnia [None]
  - Tic [None]
  - Behaviour disorder [None]
  - Dysphemia [None]
  - Sleep terror [None]

NARRATIVE: CASE EVENT DATE: 20191202
